FAERS Safety Report 8914878 (Version 2)
Quarter: 2013Q1

REPORT INFORMATION
  Report Type: Report from Study
  Country: US (occurrence: US)
  Receive Date: 20121119
  Receipt Date: 20130104
  Transmission Date: 20140127
  Serious: Yes (Hospitalization)
  Sender: FDA-Public Use
  Company Number: US-ASTRAZENECA-2012SE85171

PATIENT
  Age: 70 Year
  Sex: Male
  Weight: 97.5 kg

DRUGS (7)
  1. SYMBICORT [Suspect]
     Indication: CHRONIC OBSTRUCTIVE PULMONARY DISEASE
     Dosage: 160/4.5 MCG TWO TIMES A DAY
     Route: 055
  2. LISINOPRIL [Suspect]
     Indication: HYPERTENSION
     Route: 048
     Dates: start: 1997
  3. SEROQUEL XR [Suspect]
     Indication: DEPRESSION
     Route: 048
     Dates: start: 20111011
  4. SEROQUEL XR [Suspect]
     Indication: DEPRESSION
     Route: 048
  5. HALCION [Concomitant]
     Indication: SLEEP DISORDER
     Route: 048
     Dates: start: 1997
  6. CITALOPRAM [Concomitant]
     Indication: DEPRESSION
     Route: 048
     Dates: start: 1997
  7. ASPIRIN [Concomitant]

REACTIONS (5)
  - Pneumonia [Recovered/Resolved]
  - Depression [Unknown]
  - Adverse event [Unknown]
  - Sleep disorder [Unknown]
  - Drug dose omission [Unknown]
